FAERS Safety Report 4467385-1 (Version None)
Quarter: 2004Q4

REPORT INFORMATION
  Report Type: 
  Country: None (occurrence: None)
  Receive Date: 20041006
  Receipt Date: 20030707
  Transmission Date: 20050328
  Serious: Yes (Hospitalization)
  Sender: FDA-Public Use
  Company Number: PHBS2003JP07199

PATIENT
  Age: 61 Year
  Sex: Male
  Weight: 49 kg

DRUGS (14)
  1. TEGRETOL [Suspect]
     Indication: HYPOAESTHESIA
     Dosage: 100 MG/DAY
     Route: 048
     Dates: start: 20030603, end: 20030705
  2. KLARICID [Suspect]
     Route: 065
     Dates: start: 20030701, end: 20030705
  3. MEXITIL [Suspect]
     Indication: HYPOAESTHESIA
     Dosage: 100 MG, TID
     Route: 048
     Dates: start: 20030527, end: 20030705
  4. DILTIAZEM HYDROCHLORIDE [Suspect]
     Indication: MYOCARDIAL ISCHAEMIA
     Dosage: 100 MG/DAY
     Route: 048
     Dates: start: 20030509, end: 20030705
  5. KAKKON-TO [Suspect]
     Route: 065
     Dates: start: 20030701, end: 20030704
  6. HUSCODE [Suspect]
     Route: 048
     Dates: start: 20030701, end: 20030704
  7. LOXONIN [Suspect]
     Route: 065
     Dates: start: 20030701, end: 20030704
  8. LASIX [Concomitant]
     Dosage: 10 MG/DAY
     Route: 048
     Dates: start: 20030413, end: 20030706
  9. ALDACTONE [Concomitant]
     Dosage: 25 MG/DAY
     Route: 048
     Dates: start: 20030411, end: 20030706
  10. 8-HOUR BAYER [Concomitant]
     Dosage: 100 MG/DAY
     Route: 048
     Dates: start: 20030409, end: 20030709
  11. NU-LOTAN                                /JPN/ [Concomitant]
     Dosage: 25 MG/DAY
     Route: 048
     Dates: start: 20030528, end: 20030706
  12. CARVEDILOL [Concomitant]
     Dosage: 5 MG/DAY
     Route: 048
     Dates: start: 20030417
  13. GASTER [Concomitant]
     Dosage: 20 MG/DAY
     Route: 048
     Dates: start: 20030410, end: 20030706
  14. INNOLET 30R [Concomitant]
     Dosage: 14 UNITS/DAY
     Route: 058
     Dates: start: 20030610, end: 20030705

REACTIONS (16)
  - ALANINE AMINOTRANSFERASE INCREASED [None]
  - ASPARTATE AMINOTRANSFERASE INCREASED [None]
  - BLOOD ALKALINE PHOSPHATASE INCREASED [None]
  - DISORIENTATION [None]
  - DISTURBANCE IN ATTENTION [None]
  - ENCEPHALITIS [None]
  - GAMMA-GLUTAMYLTRANSFERASE INCREASED [None]
  - HEPATIC FUNCTION ABNORMAL [None]
  - HEPATOSPLENOMEGALY [None]
  - LYMPHOCYTE STIMULATION TEST POSITIVE [None]
  - MENINGITIS VIRAL [None]
  - MYOCARDIAL ISCHAEMIA [None]
  - PYREXIA [None]
  - RASH [None]
  - RENAL FAILURE ACUTE [None]
  - SOMNOLENCE [None]
